FAERS Safety Report 4504996-9 (Version None)
Quarter: 2004Q4

REPORT INFORMATION
  Report Type: 
  Country: None (occurrence: None)
  Receive Date: 20041015
  Receipt Date: 20031029
  Transmission Date: 20050328
  Serious: Yes (Other)
  Sender: FDA-Public Use
  Company Number: 2003115407

PATIENT
  Age: 66 Year
  Sex: Male
  Weight: 84.8226 kg

DRUGS (7)
  1. NEURONTIN [Suspect]
     Indication: CONVULSION
     Dosage: 900 MG TID ORAL
     Route: 048
     Dates: end: 20031001
  2. PHENYTOIN SODIUM [Concomitant]
  3. LOSARTAN POTASSIUM [Concomitant]
  4. ESOMEPRAZOLE [Concomitant]
  5. ACETYLSALICYLIC ACID [Concomitant]
  6. FINASTERIDE [Concomitant]
  7. CYCLOBENZAPRINE [Concomitant]

REACTIONS (5)
  - ASTHENIA [None]
  - FATIGUE [None]
  - INFLUENZA LIKE ILLNESS [None]
  - LOSS OF CONSCIOUSNESS [None]
  - VISUAL DISTURBANCE [None]
